FAERS Safety Report 9285149 (Version 1)
Quarter: 2013Q2

REPORT INFORMATION
  Report Type: Spontaneous
  Country: US (occurrence: US)
  Receive Date: 20130513
  Receipt Date: 20130513
  Transmission Date: 20140414
  Serious: No
  Sender: FDA-Public Use
  Company Number: US-MYLANLABS-2013S1001661

PATIENT
  Age: 48 Year
  Sex: Female

DRUGS (3)
  1. MORPHINE SULFATE EXTENDED-RELEASE TABLETS [Suspect]
     Indication: BACK PAIN
     Route: 048
     Dates: start: 20130115, end: 20130119
  2. XANAX [Concomitant]
     Indication: INSOMNIA
     Route: 048
  3. CELEBREX [Concomitant]
     Indication: RHEUMATOID ARTHRITIS
     Route: 048

REACTIONS (5)
  - Drug ineffective [Recovered/Resolved]
  - Back pain [Recovered/Resolved]
  - Drug withdrawal syndrome [Recovered/Resolved]
  - Headache [Recovered/Resolved]
  - Abnormal dreams [Recovered/Resolved]
